FAERS Safety Report 17214281 (Version 2)
Quarter: 2020Q2

REPORT INFORMATION
  Report Type: Report from Study
  Country: US (occurrence: US)
  Receive Date: 20191230
  Receipt Date: 20200428
  Transmission Date: 20200713
  Serious: No
  Sender: FDA-Public Use
  Company Number: US-BEH-2019110695

PATIENT
  Age: 57 Year
  Sex: Female

DRUGS (1)
  1. HIZENTRA [Suspect]
     Active Substance: HUMAN IMMUNOGLOBULIN G
     Indication: MULTIFOCAL MOTOR NEUROPATHY
     Dosage: 35 MILLILITER, QW
     Route: 058
     Dates: start: 2016

REACTIONS (8)
  - No adverse event [Unknown]
  - Product use in unapproved indication [Unknown]
  - Anxiety [Recovered/Resolved]
  - Fatigue [Recovered/Resolved]
  - Ankle impingement [Recovered/Resolved]
  - Ligament rupture [Recovered/Resolved]
  - Peroneal nerve palsy [Recovered/Resolved]
  - Asthenia [Recovered/Resolved]
